FAERS Safety Report 23437304 (Version 1)
Quarter: 2024Q1

REPORT INFORMATION
  Report Type: Spontaneous
  Country: PT (occurrence: PT)
  Receive Date: 20240124
  Receipt Date: 20240124
  Transmission Date: 20240409
  Serious: Yes (Life-Threatening, Other)
  Sender: FDA-Public Use
  Company Number: PT-HIKMA PHARMACEUTICALS-PT-H14001-24-00331

PATIENT

DRUGS (3)
  1. AMIODARONE [Suspect]
     Active Substance: AMIODARONE
     Indication: Atrial fibrillation
     Dosage: TOTAL DOSE OF 2,100 MG IN 36 H
     Route: 042
  2. OXAZEPAM [Concomitant]
     Active Substance: OXAZEPAM
     Indication: Alcohol withdrawal syndrome
     Dosage: 15 MILLIGRAM, QD
     Route: 042
  3. TIAPRIDE [Concomitant]
     Active Substance: TIAPRIDE
     Indication: Alcohol withdrawal syndrome
     Dosage: 100 MILLIGRAM, QD
     Route: 065

REACTIONS (4)
  - Electrocardiogram QT prolonged [Recovered/Resolved]
  - Arrhythmic storm [Recovered/Resolved]
  - Ventricular tachycardia [Recovered/Resolved]
  - Torsade de pointes [Recovered/Resolved]
